FAERS Safety Report 9909242 (Version 2)
Quarter: 2014Q1

REPORT INFORMATION
  Report Type: Spontaneous
  Country: US (occurrence: US)
  Receive Date: 20140219
  Receipt Date: 20140219
  Transmission Date: 20141002
  Serious: No
  Sender: FDA-Public Use
  Company Number: US-GILEAD-2011-0048322

PATIENT
  Age: 56 Year
  Sex: Female

DRUGS (4)
  1. LETAIRIS [Suspect]
     Indication: PULMONARY HYPERTENSION
     Dosage: 10 MG, UNK
     Route: 048
     Dates: start: 20110320
  2. LETAIRIS [Suspect]
     Indication: CONNECTIVE TISSUE DISORDER
  3. REMODULIN [Suspect]
  4. REVATIO [Concomitant]

REACTIONS (4)
  - Decreased appetite [Unknown]
  - Dizziness [Unknown]
  - Malaise [Unknown]
  - Asthenia [Unknown]
